FAERS Safety Report 7569726-5 (Version None)
Quarter: 2011Q2

REPORT INFORMATION
  Report Type: 
  Country: None (occurrence: None)
  Receive Date: 20110624
  Receipt Date: 20110615
  Transmission Date: 20111010
  Serious: Yes (Other)
  Sender: FDA-Public Use
  Company Number: SE-AMGEN-SWESP2011028788

PATIENT
  Age: 54 Year
  Sex: Male

DRUGS (2)
  1. METHOTREXATE SODIUM [Suspect]
     Indication: PSORIATIC ARTHROPATHY
     Dosage: UNK
     Dates: start: 20101001
  2. ENBREL [Suspect]
     Indication: PSORIATIC ARTHROPATHY
     Dosage: UNK
     Dates: start: 20101001, end: 20110308

REACTIONS (6)
  - GENERAL PHYSICAL HEALTH DETERIORATION [None]
  - SKIN DISORDER [None]
  - HEART RATE DECREASED [None]
  - WEIGHT DECREASED [None]
  - BACK DISORDER [None]
  - FATIGUE [None]
